FAERS Safety Report 25115279 (Version 2)
Quarter: 2025Q1

REPORT INFORMATION
  Report Type: Spontaneous
  Country: US (occurrence: US)
  Receive Date: 20250324
  Receipt Date: 20250328
  Transmission Date: 20250408
  Serious: Yes (Other)
  Sender: IOVANCE BIOTHERAPEUTICS
  Company Number: US-IOVANCE BIOTHERAPEUTICS, INC-2025IOV000041

PATIENT

DRUGS (3)
  1. AMTAGVI [Suspect]
     Active Substance: LIFILEUCEL
     Route: 042
     Dates: start: 20250204, end: 20250204
  2. CYCLOPHOSPHAMIDE [Suspect]
     Active Substance: CYCLOPHOSPHAMIDE
     Indication: Lymphodepletion
     Route: 042
     Dates: start: 2025, end: 2025
  3. FLUDARABINE [Suspect]
     Active Substance: FLUDARABINE PHOSPHATE
     Indication: Lymphodepletion
     Route: 042
     Dates: start: 2025, end: 2025

REACTIONS (8)
  - Muscular weakness [Unknown]
  - Sensory loss [Unknown]
  - Optic neuropathy [Unknown]
  - Peripheral sensory neuropathy [Unknown]
  - Cytomegalovirus test positive [Unknown]
  - Blood folate decreased [Unknown]
  - Carpal tunnel syndrome [Unknown]
  - Vertebral foraminal stenosis [Unknown]

NARRATIVE: CASE EVENT DATE: 20250314
